FAERS Safety Report 5425727-4 (Version None)
Quarter: 2007Q3

REPORT INFORMATION
  Report Type: 
  Country: None (occurrence: None)
  Receive Date: 20070824
  Receipt Date: 20070820
  Transmission Date: 20080115
  Serious: Yes (Other)
  Sender: FDA-Public Use
  Company Number: NL-PFIZER INC-2007069481

PATIENT
  Sex: Female

DRUGS (4)
  1. LIPITOR [Suspect]
     Route: 048
  2. METOPROLOL SUCCINATE [Concomitant]
  3. MONO-CEDOCARD [Concomitant]
  4. ASPIRIN [Concomitant]

REACTIONS (4)
  - CATARACT [None]
  - DRUG DISPENSING ERROR [None]
  - DRY EYE [None]
  - RETINAL DEGENERATION [None]
